FAERS Safety Report 5258456-0 (Version None)
Quarter: 2007Q1

REPORT INFORMATION
  Report Type: 
  Country: None (occurrence: None)
  Receive Date: 20070308
  Receipt Date: 20060420
  Transmission Date: 20070707
  Serious: Yes (Congenital Anomaly)
  Sender: FDA-Public Use
  Company Number: US-JNJFOC-20060405202

PATIENT
  Age: 8 Month
  Sex: Female

DRUGS (3)
  1. ARESTIN [Suspect]
  2. ARESTIN [Suspect]
  3. ARESTIN [Suspect]
     Indication: PERIODONTITIS

REACTIONS (2)
  - CONGENITAL FOOT MALFORMATION [None]
  - DRUG EXPOSURE VIA BREAST MILK [None]
